FAERS Safety Report 7938901-X (Version None)
Quarter: 2011Q4

REPORT INFORMATION
  Report Type: 
  Country: None (occurrence: None)
  Receive Date: 20111124
  Receipt Date: 20111121
  Transmission Date: 20120403
  Serious: Yes (Life-Threatening, Hospitalization, Other)
  Sender: FDA-Public Use
  Company Number: CHPA2011US016505

PATIENT
  Age: 74 Year
  Sex: Female

DRUGS (11)
  1. PREDNISONE TAB [Concomitant]
     Indication: PAIN
  2. LIPITOR [Concomitant]
     Indication: HYPERTENSION
     Dosage: UNK DF, UNK
  3. OXYCONTIN [Concomitant]
     Indication: PAIN
     Dosage: UNK DF, PRN
  4. PREDNISONE TAB [Concomitant]
     Indication: ARTHRITIS
     Dosage: 10 MG, QHS
     Route: 048
     Dates: start: 20080101
  5. ENBREL [Suspect]
     Indication: RHEUMATOID ARTHRITIS
     Dosage: UNK DF, UNK
     Dates: start: 20080101, end: 20080101
  6. FISH OIL [Concomitant]
     Dosage: UNK DF, UNK
  7. DRUG THERAPY NOS [Suspect]
     Indication: RHEUMATOID ARTHRITIS
     Dosage: UNK DF, UNK
     Dates: start: 20060101, end: 20060101
  8. BUCKLEY'S CHEST CONGESTION [Suspect]
     Indication: NASOPHARYNGITIS
     Dosage: SIP FROM THE BOTTLE
     Route: 048
     Dates: start: 20001201, end: 20110101
  9. BUCKLEY'S CHEST CONGESTION [Suspect]
     Indication: PROPHYLAXIS
  10. BUCKLEY'S CHEST CONGESTION [Suspect]
     Indication: INFLUENZA
  11. METAMUCIL-2 [Concomitant]
     Dosage: UNK DF, UNK

REACTIONS (6)
  - HAEMORRHAGE [None]
  - RECTAL HAEMORRHAGE [None]
  - CARDIAC FAILURE CONGESTIVE [None]
  - IMMUNE SYSTEM DISORDER [None]
  - OFF LABEL USE [None]
  - BLOOD GLUCOSE INCREASED [None]
